FAERS Safety Report 9411232 (Version 1)
Quarter: 2013Q3

REPORT INFORMATION
  Report Type: Spontaneous
  Country: US (occurrence: US)
  Receive Date: 20130722
  Receipt Date: 20130722
  Transmission Date: 20140515
  Serious: No
  Sender: FDA-Public Use
  Company Number: US-B.I. PHARMACEUTICALS,INC./RIDGEFIELD-2013-BI-21058BP

PATIENT
  Age: 73 Year
  Sex: Male
  Weight: 33 kg

DRUGS (7)
  1. PRADAXA [Suspect]
     Indication: ATRIAL FIBRILLATION
     Dosage: 300 MG
     Route: 048
     Dates: start: 20130603
  2. CARDURA [Concomitant]
     Indication: ATRIAL FIBRILLATION
     Dosage: 2 MG
     Route: 048
     Dates: start: 201212
  3. ALLOPURINOL [Concomitant]
     Indication: GOUT
     Dosage: 200 MG
     Route: 048
  4. LISINOPRIL [Concomitant]
     Indication: HYPERTENSION
     Dosage: 40 MG
     Route: 048
  5. ISOSORBIDE MONONITRATE ER [Concomitant]
     Indication: HYPERTENSION
     Dosage: 120 MG
     Route: 048
  6. CHLORTHALIDONE [Concomitant]
     Indication: HYPERTENSION
     Dosage: 12.5 MG
     Route: 048
  7. POTASSIUM CL [Concomitant]
     Indication: HYPERTENSION
     Dosage: 20 MEQ
     Route: 048

REACTIONS (4)
  - Arthralgia [Not Recovered/Not Resolved]
  - Arthralgia [Not Recovered/Not Resolved]
  - Dizziness [Not Recovered/Not Resolved]
  - Abdominal distension [Not Recovered/Not Resolved]
